FAERS Safety Report 11513385 (Version 1)
Quarter: 2015Q3

REPORT INFORMATION
  Report Type: Spontaneous
  Country: US (occurrence: US)
  Receive Date: 20150916
  Receipt Date: 20150916
  Transmission Date: 20151125
  Serious: No
  Sender: FDA-Public Use
  Company Number: US-BIOGENIDEC-2015BI125853

PATIENT
  Sex: Female

DRUGS (1)
  1. AVONEX [Suspect]
     Active Substance: INTERFERON BETA-1A
     Indication: MULTIPLE SCLEROSIS
     Route: 030
     Dates: start: 20080101, end: 20120901

REACTIONS (5)
  - Depressed mood [Recovered/Resolved]
  - Discomfort [Unknown]
  - Headache [Recovered/Resolved]
  - Sleep disorder [Unknown]
  - Asthenia [Recovered/Resolved]
